FAERS Safety Report 16342269 (Version 1)
Quarter: 2019Q2

REPORT INFORMATION
  Report Type: Report from Study
  Country: US (occurrence: US)
  Receive Date: 20190522
  Receipt Date: 20190522
  Transmission Date: 20190711
  Serious: Yes (Other)
  Sender: FDA-Public Use
  Company Number: US-PFIZER INC-2019214350

PATIENT
  Sex: Female

DRUGS (4)
  1. CARBOPLATIN. [Suspect]
     Active Substance: CARBOPLATIN
     Indication: OVARIAN CANCER
     Dosage: (AUC 3-5 ON DAY 1) OF EACH 21-DAY CYCLE, INCREASING TO DL3 AUC5; AUC4 DAY 1; DAY 1 OR 2)
     Route: 042
  2. OLAPARIB. [Concomitant]
     Active Substance: OLAPARIB
     Indication: OVARIAN CANCER
     Dosage: 400 MG, CYCLIC (TWICE DAILY ON DAYS 1-7, MAINTENANCE THERAPY WAS CONTINUED, 8 CYCLES)
  3. DEXAMETHASONE. [Concomitant]
     Active Substance: DEXAMETHASONE
     Indication: PROPHYLAXIS OF NAUSEA AND VOMITING
     Dosage: CYCLIC (DAYS 1-4)
  4. GRANISETRON [Concomitant]
     Active Substance: GRANISETRON
     Indication: PROPHYLAXIS OF NAUSEA AND VOMITING
     Dosage: CYCLIC (DAYS 1-7)

REACTIONS (1)
  - Infection [Unknown]
